FAERS Safety Report 5309017-6 (Version None)
Quarter: 2007Q2

REPORT INFORMATION
  Report Type: 
  Country: None (occurrence: None)
  Receive Date: 20070426
  Receipt Date: 20070417
  Transmission Date: 20071010
  Serious: Yes (Other)
  Sender: FDA-Public Use
  Company Number: US-PFIZER INC-2007012478

PATIENT
  Sex: Male
  Weight: 102.1 kg

DRUGS (7)
  1. NICOTROL [Suspect]
     Indication: SMOKING CESSATION THERAPY
     Dosage: TEXT:ONE SPRAY EACH NOSTRIL
     Dates: start: 20070211, end: 20070211
  2. XANAX [Concomitant]
     Dosage: TEXT:1MG-FREQ:1 - 2 TIMES DAILY
  3. ACETYLSALICYLIC ACID SRT [Concomitant]
  4. ASCORBIC ACID [Concomitant]
  5. VITAMIN CAP [Concomitant]
  6. FLOMAX [Concomitant]
  7. INDOMETHACIN [Concomitant]

REACTIONS (4)
  - DIABETES MELLITUS [None]
  - DYSGEUSIA [None]
  - NASAL DISCOMFORT [None]
  - RHINORRHOEA [None]
